FAERS Safety Report 7435866-4 (Version None)
Quarter: 2011Q2

REPORT INFORMATION
  Report Type: 
  Country: None (occurrence: None)
  Receive Date: 20110425
  Receipt Date: 20110330
  Transmission Date: 20111010
  Serious: No
  Sender: FDA-Public Use
  Company Number: US-B.I. PHARMACEUTICALS,INC./RIDGEFIELD-2011-BP-09655BP

PATIENT
  Sex: Female

DRUGS (2)
  1. MICARDIS [Suspect]
     Dosage: 80 MG
  2. MICARDIS [Suspect]
     Indication: HYPERTENSION
     Dosage: 160 MG
     Dates: start: 20110330, end: 20110330

REACTIONS (1)
  - ACCIDENTAL OVERDOSE [None]
